FAERS Safety Report 17958394 (Version 2)
Quarter: 2023Q2

REPORT INFORMATION
  Report Type: Spontaneous
  Country: ES (occurrence: ES)
  Receive Date: 20200629
  Receipt Date: 20230607
  Transmission Date: 20230722
  Serious: Yes (Hospitalization)
  Sender: FDA-Public Use
  Company Number: None

PATIENT
  Age: 48 Year
  Sex: Female

DRUGS (9)
  1. HYDROXYCHLOROQUINE [Suspect]
     Active Substance: HYDROXYCHLOROQUINE
     Indication: Pneumonia
     Dosage: 400 MG, QD
     Route: 048
     Dates: start: 20200403, end: 20200409
  2. HYDROXYCHLOROQUINE [Suspect]
     Active Substance: HYDROXYCHLOROQUINE
     Indication: Coronavirus infection
  3. DEXAMETHASONE [Suspect]
     Active Substance: DEXAMETHASONE
     Indication: Coronavirus infection
     Dosage: 20 MG, QD
     Route: 042
     Dates: start: 202004, end: 20200415
  4. DEXAMETHASONE [Suspect]
     Active Substance: DEXAMETHASONE
     Indication: Severe acute respiratory syndrome
  5. ENOXAPARIN [Suspect]
     Active Substance: ENOXAPARIN
     Indication: Embolism
     Dosage: 60 MG, Q12H
     Route: 058
     Dates: start: 202004, end: 20200420
  6. TOCILIZUMAB [Suspect]
     Active Substance: TOCILIZUMAB
     Indication: Coronavirus infection
     Dosage: 600 MG (1 TOTAL)
     Route: 042
     Dates: start: 20200403, end: 20200403
  7. TOCILIZUMAB [Suspect]
     Active Substance: TOCILIZUMAB
     Indication: Severe acute respiratory syndrome
  8. AZITHROMYCIN [Suspect]
     Active Substance: AZITHROMYCIN
     Indication: Coronavirus infection
     Dosage: 500 MG, QD
     Route: 042
     Dates: start: 20200403, end: 20200409
  9. AZITHROMYCIN [Suspect]
     Active Substance: AZITHROMYCIN
     Indication: Pneumonia

REACTIONS (3)
  - Blood loss anaemia [Not Recovered/Not Resolved]
  - Hepatitis acute [Unknown]
  - Gastrointestinal haemorrhage [Recovering/Resolving]

NARRATIVE: CASE EVENT DATE: 20200404
